FAERS Safety Report 6495954-6 (Version None)
Quarter: 2009Q4

REPORT INFORMATION
  Report Type: 
  Country: None (occurrence: None)
  Receive Date: 20091214
  Receipt Date: 20090918
  Transmission Date: 20100525
  Serious: No
  Sender: FDA-Public Use
  Company Number: US-BRISTOL-MYERS SQUIBB COMPANY-14767248

PATIENT
  Age: 65 Year
  Sex: Female

DRUGS (4)
  1. ABILIFY [Suspect]
     Indication: DEPRESSION
     Dosage: 1 DOSAGE FORM = 5 MG, 1/2 TABLET TO 1 TABLET EVERY MORNING. THERAPY CONTINUED
     Route: 048
     Dates: start: 20080601
  2. ABILIFY [Suspect]
     Indication: ANXIETY
     Dosage: 1 DOSAGE FORM = 5 MG, 1/2 TABLET TO 1 TABLET EVERY MORNING. THERAPY CONTINUED
     Route: 048
     Dates: start: 20080601
  3. ZOLOFT [Concomitant]
     Dosage: FREQUENCY: QAM.
     Route: 048
  4. SYNTHROID [Concomitant]
     Route: 048

REACTIONS (1)
  - URINE ODOUR ABNORMAL [None]
